FAERS Safety Report 4561511-1 (Version None)
Quarter: 2005Q1

REPORT INFORMATION
  Report Type: 
  Country: None (occurrence: None)
  Receive Date: 20050121
  Receipt Date: 20050104
  Transmission Date: 20050727
  Serious: Yes (Life-Threatening, Hospitalization)
  Sender: FDA-Public Use
  Company Number: 2004UW24843

PATIENT
  Age: 38 Year
  Sex: Female
  Weight: 48 kg

DRUGS (17)
  1. CRESTOR [Suspect]
     Indication: HYPERLIPIDAEMIA
     Dosage: 10 MG HS PO
     Route: 048
     Dates: start: 20040831
  2. IBUPROFEN [Suspect]
     Dosage: 1200 MG DAILY
     Dates: start: 20020501
  3. GENTAMICIN [Suspect]
  4. VICODIN [Concomitant]
  5. FIORINAL [Concomitant]
  6. BROMFENEX [Concomitant]
  7. NIZORAL [Concomitant]
  8. IRON [Concomitant]
  9. KEFLEX [Concomitant]
  10. PROMETHAZINE [Concomitant]
  11. PREDNISONE [Concomitant]
  12. ADVAIR DISKUS 100/50 [Concomitant]
  13. CLONAPIN [Concomitant]
  14. BACLOFEN [Concomitant]
  15. ANTIVERT [Concomitant]
  16. ORTHO TRI-CYCLEN [Concomitant]
  17. EXCEDRIN (MIGRAINE) [Concomitant]

REACTIONS (19)
  - ALCOHOL USE [None]
  - AMPHETAMINES POSITIVE [None]
  - BARBITURATES POSITIVE [None]
  - BILIARY DILATATION [None]
  - BLOOD ALBUMIN DECREASED [None]
  - CHOLANGITIS [None]
  - COAGULOPATHY [None]
  - DISSEMINATED INTRAVASCULAR COAGULATION [None]
  - HAEMOLYSIS [None]
  - HEPATIC FAILURE [None]
  - HEPATOCELLULAR DAMAGE [None]
  - MYOPATHY [None]
  - PANCYTOPENIA [None]
  - PULMONARY EMBOLISM [None]
  - RENAL FAILURE ACUTE [None]
  - RHABDOMYOLYSIS [None]
  - SEPSIS [None]
  - SHIFT TO THE LEFT [None]
  - TOXICOLOGIC TEST ABNORMAL [None]
